FAERS Safety Report 8397850-6 (Version None)
Quarter: 2012Q2

REPORT INFORMATION
  Report Type: 
  Country: None (occurrence: None)
  Receive Date: 20120531
  Receipt Date: 20120518
  Transmission Date: 20120825
  Serious: No
  Sender: FDA-Public Use
  Company Number: US-ASTRAZENECA-2012SE32243

PATIENT
  Age: 80 Year
  Sex: Male
  Weight: 90.3 kg

DRUGS (15)
  1. VITAMIN B-12 [Concomitant]
     Route: 048
  2. SPIRONOLACTONE [Concomitant]
     Dosage: 25 MG HALF TABLET EVERY MORNING
     Route: 048
  3. TAMSULOSIN HCL [Concomitant]
     Route: 048
  4. GLUCOSAMINE [Concomitant]
     Route: 048
  5. LISINOPRIL [Suspect]
     Route: 048
  6. ALBUTEROL [Concomitant]
     Dosage: ONE OR TWO PUFFS SIX TIMES DAILY AS NEEDED
  7. OCUVITE LUTEIN [Concomitant]
     Route: 048
  8. VITAMIN D [Concomitant]
  9. LIPITOR [Concomitant]
     Route: 048
  10. WARFARIN SODIUM [Concomitant]
     Route: 048
  11. SYMBICORT [Suspect]
     Indication: ASTHMA
     Dosage: 80/4.5 MCG TWO INHALATIONS TWICE A DAY
     Route: 055
     Dates: start: 20110718, end: 20120101
  12. SYMBICORT [Suspect]
     Route: 055
     Dates: start: 20120501
  13. LEVOTHYROXINE SODIUM [Concomitant]
     Route: 048
  14. IRON [Concomitant]
     Route: 048
  15. LOVAZA [Concomitant]
     Dosage: ONE EACH MEAL
     Route: 048

REACTIONS (2)
  - DYSPHONIA [None]
  - COUGH [None]
